FAERS Safety Report 14830112 (Version 1)
Quarter: 2018Q2

REPORT INFORMATION
  Report Type: Report from Study
  Country: US (occurrence: US)
  Receive Date: 20180430
  Receipt Date: 20180430
  Transmission Date: 20180711
  Serious: Yes (Hospitalization)
  Sender: FDA-Public Use
  Company Number: US-ACTELION-A-US2018-171444

PATIENT
  Age: 83 Year
  Sex: Female
  Weight: 79.37 kg

DRUGS (24)
  1. ULTRAM [Concomitant]
     Active Substance: TRAMADOL HYDROCHLORIDE
     Dosage: 50 MG, QD
     Route: 048
  2. ASA EC [Concomitant]
     Active Substance: ASPIRIN
     Dosage: 81 MG, QD
     Route: 048
  3. VITAMIN D3 [Concomitant]
     Active Substance: CHOLECALCIFEROL
     Dosage: 1000 U, QD
     Route: 048
  4. FERROUS SULFATE. [Concomitant]
     Active Substance: FERROUS SULFATE
     Dosage: 325 MG, QD
     Route: 048
  5. EFFEXOR [Concomitant]
     Active Substance: VENLAFAXINE HYDROCHLORIDE
     Dosage: 37.5 MG, QD
     Route: 048
  6. NEXIUM [Concomitant]
     Active Substance: ESOMEPRAZOLE MAGNESIUM
     Dosage: 20 MG, QD
     Route: 048
  7. LASIX [Concomitant]
     Active Substance: FUROSEMIDE
     Dosage: 40 MG, UNK
  8. COREG [Concomitant]
     Active Substance: CARVEDILOL
     Dosage: 6.25 MG, BID
     Route: 048
  9. FISH OIL [Concomitant]
     Active Substance: FISH OIL
     Dosage: 1000 MG, QD
     Route: 048
  10. TRACLEER [Suspect]
     Active Substance: BOSENTAN
     Indication: PRODUCT USED FOR UNKNOWN INDICATION
     Dosage: 125 MG, BID
     Route: 048
     Dates: start: 20180227
  11. TRACLEER [Suspect]
     Active Substance: BOSENTAN
     Dosage: 125 MG, BID
     Route: 048
     Dates: start: 201311
  12. APRESOLINE HYDROCHLORIDE [Concomitant]
     Active Substance: HYDRALAZINE HYDROCHLORIDE
     Dosage: 50 MG, TID
     Route: 048
     Dates: start: 20180315
  13. NEURONTIN [Concomitant]
     Active Substance: GABAPENTIN
     Dosage: 300 MG, TID
     Route: 048
  14. COLACE [Concomitant]
     Active Substance: DOCUSATE SODIUM
  15. ZOFRAN [Concomitant]
     Active Substance: ONDANSETRON HYDROCHLORIDE
     Indication: NAUSEA
     Dosage: 4 MG, Q6HRS, PRN
     Route: 048
  16. LEVAQUIN [Concomitant]
     Active Substance: LEVOFLOXACIN
     Dosage: 500 MG, UNK
  17. LOPID [Concomitant]
     Active Substance: GEMFIBROZIL
     Dosage: 600 MG, UNK
  18. DEMADEX [Concomitant]
     Active Substance: TORSEMIDE
     Dosage: 100 MG, QD
     Route: 048
     Dates: start: 20180316
  19. ADEMPAS [Concomitant]
     Active Substance: RIOCIGUAT
     Dosage: 2 MG, TID
     Route: 048
  20. FOSAMAX [Concomitant]
     Active Substance: ALENDRONATE SODIUM
     Dosage: 35 MG, UNK
  21. ZOCOR [Concomitant]
     Active Substance: SIMVASTATIN
     Dosage: 40 MG, QPM
     Route: 048
  22. PHENERGAN [Concomitant]
     Active Substance: PROMETHAZINE HYDROCHLORIDE
     Indication: NAUSEA
     Dosage: 25 MG, Q4HRS PRN
     Route: 048
  23. ZAROXOLYN [Concomitant]
     Active Substance: METOLAZONE
     Dosage: 2.5 MG, UNK
  24. NORCO [Concomitant]
     Active Substance: ACETAMINOPHEN\HYDROCODONE BITARTRATE
     Dosage: 5/325MG

REACTIONS (15)
  - Protein total decreased [Recovering/Resolving]
  - Dehydration [Unknown]
  - Dysphonia [Recovering/Resolving]
  - Catheter site erythema [Recovering/Resolving]
  - Cardiac failure acute [Recovering/Resolving]
  - Acute kidney injury [Recovering/Resolving]
  - Biopsy bone marrow [Recovering/Resolving]
  - Blood glucose increased [Recovering/Resolving]
  - Renal disorder [Recovering/Resolving]
  - Pancytopenia [Recovering/Resolving]
  - Dyspnoea [Recovering/Resolving]
  - Left ventricular failure [Recovering/Resolving]
  - Cardiac failure congestive [Recovering/Resolving]
  - Condition aggravated [Recovering/Resolving]
  - Blood albumin decreased [Recovering/Resolving]

NARRATIVE: CASE EVENT DATE: 201803
